FAERS Safety Report 9690150 (Version 2)
Quarter: 2013Q4

REPORT INFORMATION
  Report Type: Spontaneous
  Country: US (occurrence: US)
  Receive Date: 20131115
  Receipt Date: 20131216
  Transmission Date: 20140711
  Serious: Yes (Other)
  Sender: FDA-Public Use
  Company Number: PHEH2013US023730

PATIENT
  Sex: Female

DRUGS (9)
  1. DIOVAN [Suspect]
     Dosage: 160 MG, BID
     Route: 048
     Dates: start: 1993
  2. DIOVAN [Suspect]
     Dosage: 160 MG, QD
  3. DIOVAN [Suspect]
     Dosage: 160 MG, BID
  4. CHLORTALIDONE [Suspect]
     Dosage: UNK UKN, UNK
  5. CHLORTALIDONE [Suspect]
     Dosage: 0.33 DF, UNK
  6. LOSARTAN [Suspect]
     Dosage: UNK UKN, UNK
     Route: 048
  7. OTHER ANTIHYPERTENSIVES [Suspect]
     Dosage: UNK UKN, UNK
  8. GLUCOTROL XL [Concomitant]
     Indication: TYPE 2 DIABETES MELLITUS
  9. METOPROLOL [Concomitant]

REACTIONS (8)
  - Haemorrhage [Unknown]
  - Muscular weakness [Unknown]
  - Pollakiuria [Unknown]
  - Abdominal discomfort [Unknown]
  - Flatulence [Unknown]
  - Pruritus [Unknown]
  - Fatigue [Unknown]
  - Blood pressure increased [Unknown]
